FAERS Safety Report 24825436 (Version 1)
Quarter: 2025Q1

REPORT INFORMATION
  Report Type: Spontaneous
  Country: KR (occurrence: KR)
  Receive Date: 20250109
  Receipt Date: 20250109
  Transmission Date: 20250409
  Serious: Yes (Hospitalization, Other)
  Sender: ORGANON
  Company Number: KR-ORGANON-O2501KOR000362

PATIENT
  Age: 71 Year
  Sex: Male
  Weight: 70 kg

DRUGS (5)
  1. ATORVASTATIN CALCIUM\EZETIMIBE [Suspect]
     Active Substance: ATORVASTATIN CALCIUM\EZETIMIBE
     Indication: Type IIa hyperlipidaemia
     Dosage: 1 DOSAGE FORM, QD (10/20) (FILM COATED TABLET))
     Route: 048
     Dates: start: 20150921
  2. CLOPIDOGREL BISULFATE AND ASPIRIN [Concomitant]
     Indication: Prophylaxis
     Dosage: 1 DOSAGE FORM, QD (HARD CAPSULE, GRANULES))
     Route: 048
     Dates: start: 20150910
  3. NICERGOLINE [Concomitant]
     Active Substance: NICERGOLINE
     Indication: Peripheral arterial occlusive disease
     Dosage: 10 MILLIGRAM, BID (0.5 DAY) (SUGAR COATED TABLETS))
     Route: 048
     Dates: start: 20150620, end: 20160309
  4. CARVEDILOL [Concomitant]
     Active Substance: CARVEDILOL
     Dosage: 6.25 MILLIGRAM, BID (0.5 DAYS) (UNCOATED TABLET)
     Route: 048
     Dates: start: 20151217, end: 20160106
  5. AMIODARONE HYDROCHLORIDE [Concomitant]
     Active Substance: AMIODARONE HYDROCHLORIDE
     Indication: Atrial flutter
     Dosage: 200 MILLIGRAM, BID (0.5 DAYS) (UNCOATED TABLET)
     Route: 048
     Dates: start: 20151217, end: 20160106

REACTIONS (2)
  - Bradycardia [Recovered/Resolved]
  - Hyperkalaemia [Recovered/Resolved]

NARRATIVE: CASE EVENT DATE: 20160105
